FAERS Safety Report 8204555-0 (Version None)
Quarter: 2012Q1

REPORT INFORMATION
  Report Type: 
  Country: None (occurrence: None)
  Receive Date: 20120313
  Receipt Date: 20120309
  Transmission Date: 20120608
  Serious: Yes (Other)
  Sender: FDA-Public Use
  Company Number: JP-PFIZER INC-2012033583

PATIENT
  Age: 83 Year
  Sex: Female

DRUGS (14)
  1. LANSOPRAZOLE [Concomitant]
     Dosage: 15 MG, 1X/DAY
     Route: 048
     Dates: start: 20040331
  2. FAMOTIDINE [Concomitant]
     Dosage: 0.3 G, 3X/DAY
     Route: 048
  3. SUCRALFATE [Concomitant]
     Dosage: 0.3 G, 3X/DAY
     Route: 048
     Dates: start: 20091112
  4. ZOLOFT [Suspect]
     Indication: DEPRESSION
     Dosage: 25MG, DAILY
     Route: 048
     Dates: start: 20110901, end: 20120204
  5. ZOLPIDEM [Suspect]
     Indication: INSOMNIA
     Dosage: 10MG, DAILY
     Route: 048
     Dates: start: 20110517, end: 20120204
  6. CANDESARTAN CILEXETIL AND HYDROCHLOROTHIAZIDE [Concomitant]
     Dosage: 1 DF, DAILY
     Route: 048
     Dates: start: 20091112
  7. LAC B [Concomitant]
     Dosage: 1 G, 3X/DAY
     Route: 048
  8. ARICEPT [Concomitant]
     Dosage: 5 MG, 1X/DAY
     Route: 048
     Dates: start: 20040331
  9. LIPITOR [Concomitant]
     Dosage: 10 MG, 1X/DAY
     Route: 048
     Dates: start: 20060428
  10. PLAVIX [Concomitant]
     Dosage: 75 MG, 1X/DAY
     Route: 048
     Dates: start: 20080425
  11. BISOPROLOL FUMARATE [Concomitant]
     Dosage: 2.5 MG, 2X/DAY
     Route: 048
     Dates: start: 20120202
  12. DOXAZOSIN MESYLATE [Concomitant]
     Dosage: 2 MG, 2X/DAY
     Route: 048
     Dates: start: 20061117
  13. CILOSTAZOL [Concomitant]
     Dosage: 50 MG, 2X/DAY
     Route: 048
     Dates: start: 20100924
  14. AMLODIPINE [Concomitant]
     Dosage: 5 MG, 1X/DAY
     Route: 048
     Dates: start: 20120202

REACTIONS (1)
  - DELIRIUM [None]
